FAERS Safety Report 10425228 (Version 2)
Quarter: 2014Q3

REPORT INFORMATION
  Report Type: Spontaneous
  Country: DE (occurrence: DE)
  Receive Date: 20140902
  Receipt Date: 20140902
  Transmission Date: 20150326
  Serious: Yes (Hospitalization, Other)
  Sender: FDA-Public Use
  Company Number: DE-PFIZER INC-2014235288

PATIENT
  Age: 14 Year
  Sex: Female
  Weight: 40.5 kg

DRUGS (6)
  1. RAPAMUNE [Suspect]
     Active Substance: SIROLIMUS
     Indication: RENAL TRANSPLANT
     Dosage: 2 MG, DAILY
     Route: 048
     Dates: start: 200808
  2. VIGANTOL [Concomitant]
  3. MYCOPHENOLATE MOFETIL. [Concomitant]
     Active Substance: MYCOPHENOLATE MOFETIL
     Dosage: 250 MG, 2X/DAY
     Dates: start: 200808
  4. PREDNISONE. [Concomitant]
     Active Substance: PREDNISONE
     Dosage: 2 MG, / 48 H.
  5. FERRO SANOL [Concomitant]
     Active Substance: FERROUS SULFATE\GLYCINE
  6. RAMIPRIL. [Concomitant]
     Active Substance: RAMIPRIL

REACTIONS (1)
  - Renal cyst [Not Recovered/Not Resolved]

NARRATIVE: CASE EVENT DATE: 20140319
